FAERS Safety Report 23995221 (Version 1)
Quarter: 2024Q2

REPORT INFORMATION
  Report Type: Spontaneous
  Country: US (occurrence: US)
  Receive Date: 20240620
  Receipt Date: 20240620
  Transmission Date: 20240715
  Serious: No
  Sender: FDA-Public Use
  Company Number: US-Eisai-EC-2024-165416

PATIENT
  Age: 85 Year
  Sex: Female

DRUGS (1)
  1. LEQEMBI [Suspect]
     Active Substance: LECANEMAB-IRMB
     Indication: Dementia Alzheimer^s type
     Dosage: DOSE UNKNOWN.
     Route: 042
     Dates: start: 20240507

REACTIONS (2)
  - Tremor [Recovered/Resolved]
  - Blood glucose increased [Recovered/Resolved]

NARRATIVE: CASE EVENT DATE: 20240507
